FAERS Safety Report 16643160 (Version 4)
Quarter: 2019Q4

REPORT INFORMATION
  Report Type: Spontaneous
  Country: US (occurrence: US)
  Receive Date: 20190729
  Receipt Date: 20191121
  Transmission Date: 20200122
  Serious: Yes (Life-Threatening)
  Sender: FDA-Public Use
  Company Number: US-PFIZER INC-2019321845

PATIENT
  Age: 80 Year
  Sex: Female
  Weight: 62 kg

DRUGS (2)
  1. LATANOPROST. [Suspect]
     Active Substance: LATANOPROST
     Indication: GLAUCOMA
     Dosage: UNK
  2. LATANOPROST. [Suspect]
     Active Substance: LATANOPROST
     Indication: INTRAOCULAR PRESSURE TEST ABNORMAL
     Dosage: 2 GTT, 1X/DAY [AT NIGHT]
     Route: 047
     Dates: end: 2012

REACTIONS (8)
  - Drug ineffective [Unknown]
  - Eye swelling [Unknown]
  - Heart rate irregular [Unknown]
  - Pharyngeal swelling [Unknown]
  - Heart rate increased [Unknown]
  - Urticaria [Unknown]
  - Drug hypersensitivity [Unknown]
  - Rash pruritic [Unknown]
